FAERS Safety Report 7062601 (Version 20)
Quarter: 2014Q1

REPORT INFORMATION
  Report Type: Spontaneous
  Country: US (occurrence: US)
  Receive Date: 20090724
  Receipt Date: 20140131
  Transmission Date: 20141002
  Serious: Yes (Death, Hospitalization, Other)
  Sender: FDA-Public Use
  Company Number: PHEH2009US07547

PATIENT
  Age: 70 Year
  Sex: Female

DRUGS (10)
  1. ZOMETA [Suspect]
     Indication: BONE LESION
     Dosage: UKN, QMO
     Route: 042
  2. FOSAMAX [Suspect]
  3. CHEMOTHERAPEUTICS NOS [Concomitant]
  4. BACITRACIN [Concomitant]
  5. ARIMIDEX [Concomitant]
     Dosage: 1 MG, QD
  6. TRIAMTERENE [Concomitant]
  7. DYAZIDE [Concomitant]
     Dosage: 25 MG, UNK
  8. AVASTIN [Concomitant]
  9. GEMZAR [Concomitant]
  10. CARBOPLATIN [Concomitant]

REACTIONS (108)
  - Death [Fatal]
  - Lethargy [Unknown]
  - Febrile neutropenia [Unknown]
  - Osteonecrosis of jaw [Unknown]
  - General physical health deterioration [Unknown]
  - Pain [Unknown]
  - Anxiety [Unknown]
  - Decreased interest [Unknown]
  - Gingivitis [Unknown]
  - Impaired healing [Unknown]
  - Periodontitis [Unknown]
  - Gingival pain [Unknown]
  - Bone lesion [Unknown]
  - Dysgeusia [Unknown]
  - Erythema [Unknown]
  - Device breakage [Unknown]
  - Necrosis [Unknown]
  - Osteoporosis [Unknown]
  - Hypertension [Unknown]
  - Breast cancer [Unknown]
  - Anaemia [Recovering/Resolving]
  - Granuloma [Unknown]
  - Spondylitis [Unknown]
  - Intervertebral disc protrusion [Unknown]
  - Osteoarthritis [Unknown]
  - Arthralgia [Unknown]
  - Bronchitis viral [Unknown]
  - Rhinitis [Unknown]
  - Laryngitis [Unknown]
  - Renal failure [Unknown]
  - Hydronephrosis [Unknown]
  - Pollakiuria [Unknown]
  - Hot flush [Unknown]
  - Alopecia [Unknown]
  - Skin exfoliation [Unknown]
  - Paraesthesia [Unknown]
  - Adnexa uteri mass [Unknown]
  - Ovarian cyst [Unknown]
  - Uterine leiomyoma [Unknown]
  - Pleural effusion [Unknown]
  - Fall [Unknown]
  - Radius fracture [Unknown]
  - Joint effusion [Unknown]
  - Metastases to bladder [Unknown]
  - Metastases to ovary [Unknown]
  - Metastases to liver [Unknown]
  - Metastases to abdominal cavity [Unknown]
  - Metastases to retroperitoneum [Unknown]
  - Ureteric obstruction [Unknown]
  - Adrenal cyst [Unknown]
  - Jaundice [Unknown]
  - Pneumonia [Unknown]
  - Confusional state [Unknown]
  - Hypotension [Unknown]
  - Vocal cord polyp [Unknown]
  - Mental status changes [Unknown]
  - Hilar lymphadenopathy [Unknown]
  - Dehydration [Unknown]
  - Atelectasis [Unknown]
  - Metastases to kidney [Unknown]
  - Dysphonia [Unknown]
  - Pulmonary mass [Unknown]
  - Metastases to lymph nodes [Unknown]
  - Nephrolithiasis [Unknown]
  - Device related infection [Unknown]
  - Gastrooesophageal reflux disease [Unknown]
  - Ovarian fibrosis [Unknown]
  - Osteopenia [Unknown]
  - Lymphadenopathy [Unknown]
  - Diverticulum [Unknown]
  - Exposed bone in jaw [Unknown]
  - Dental plaque [Unknown]
  - Tooth deposit [Unknown]
  - Primary sequestrum [Unknown]
  - Uterine disorder [Unknown]
  - Ventricular hypokinesia [Unknown]
  - Tricuspid valve incompetence [Unknown]
  - Aortic valve incompetence [Unknown]
  - Aortic valve disease [Unknown]
  - Dyspnoea exertional [Unknown]
  - Sinus congestion [Unknown]
  - Wound [Unknown]
  - Gastrointestinal viral infection [Unknown]
  - Mitral valve incompetence [Unknown]
  - Back pain [Unknown]
  - Cough [Unknown]
  - Pyrexia [Unknown]
  - Fatigue [Unknown]
  - Tooth fracture [Unknown]
  - Bone loss [Unknown]
  - Dental caries [Unknown]
  - Gingival ulceration [Unknown]
  - Gingival bleeding [Unknown]
  - Hepatic cyst [Unknown]
  - Spinal osteoarthritis [Unknown]
  - Bronchiectasis [Unknown]
  - Hepatic cirrhosis [Unknown]
  - Ascites [Unknown]
  - Thyroid disorder [Unknown]
  - Arteriosclerosis [Unknown]
  - Vascular calcification [Unknown]
  - Osteosclerosis [Unknown]
  - Aortic disorder [Unknown]
  - Breast cancer metastatic [Unknown]
  - Implant site extravasation [Unknown]
  - Metastases to bone [Unknown]
  - Metastases to spine [Unknown]
  - Hepatic neoplasm [Unknown]
